FAERS Safety Report 10898948 (Version 1)
Quarter: 2015Q1

REPORT INFORMATION
  Report Type: Spontaneous
  Country: PT (occurrence: PT)
  Receive Date: 20150309
  Receipt Date: 20150309
  Transmission Date: 20150721
  Serious: Yes (Other)
  Sender: FDA-Public Use
  Company Number: PT-TEVA-545535ISR

PATIENT
  Age: 52 Year
  Sex: Female
  Weight: 60 kg

DRUGS (3)
  1. ATORVASTATINA MEPHA [Suspect]
     Active Substance: ATORVASTATIN CALCIUM
     Indication: HYPERCHOLESTEROLAEMIA
     Dosage: 20 MILLIGRAM DAILY;
     Route: 048
     Dates: start: 20141108, end: 20141115
  2. VALSARTAN PHARMACONS [Concomitant]
     Indication: HYPERTENSION
     Dosage: 80 MILLIGRAM DAILY;
     Route: 048
     Dates: start: 2013
  3. LETTER [Concomitant]
     Indication: HYPOTHYROIDISM
     Dosage: .1 MILLIGRAM DAILY;
     Route: 048
     Dates: start: 1983

REACTIONS (4)
  - Dizziness [Recovered/Resolved]
  - Breast discomfort [Recovered/Resolved]
  - Breast pain [Recovered/Resolved]
  - Headache [Recovered/Resolved]

NARRATIVE: CASE EVENT DATE: 20141108
